FAERS Safety Report 20505293 (Version 1)
Quarter: 2022Q1

REPORT INFORMATION
  Report Type: Spontaneous
  Country: US (occurrence: US)
  Receive Date: 20220223
  Receipt Date: 20220223
  Transmission Date: 20220423
  Serious: No
  Sender: FDA-Public Use
  Company Number: US-CELGENE-USA-20220206034

PATIENT
  Sex: Male
  Weight: 54.934 kg

DRUGS (1)
  1. REVLIMID [Suspect]
     Active Substance: LENALIDOMIDE
     Indication: Plasma cell myeloma
     Dosage: 10 MILLIGRAM
     Route: 048
     Dates: start: 202101

REACTIONS (4)
  - Hypertonic bladder [Recovering/Resolving]
  - Gingivitis [Recovering/Resolving]
  - Cough [Recovering/Resolving]
  - Contusion [Recovering/Resolving]
